FAERS Safety Report 12092291 (Version 1)
Quarter: 2016Q1

REPORT INFORMATION
  Report Type: Spontaneous
  Country: US (occurrence: None)
  Receive Date: 20160218
  Receipt Date: 20160218
  Transmission Date: 20160526
  Serious: Yes (Other)
  Sender: FDA-Public Use
  Company Number: None

PATIENT
  Age: 45 Year
  Sex: Female
  Weight: 104.33 kg

DRUGS (5)
  1. FISH OIL [Concomitant]
     Active Substance: FISH OIL
  2. XANAX [Concomitant]
     Active Substance: ALPRAZOLAM
  3. DULOXETINE. [Suspect]
     Active Substance: DULOXETINE
     Indication: POST-TRAUMATIC STRESS DISORDER
     Route: 048
     Dates: start: 20160119, end: 20160217
  4. RANATADINE [Concomitant]
  5. PROBIOTIC [Concomitant]
     Active Substance: PROBIOTICS NOS

REACTIONS (7)
  - Irritability [None]
  - Apathy [None]
  - Nausea [None]
  - Urticaria [None]
  - Headache [None]
  - Depression [None]
  - Mood altered [None]

NARRATIVE: CASE EVENT DATE: 20160119
